FAERS Safety Report 22787521 (Version 4)
Quarter: 2024Q1

REPORT INFORMATION
  Report Type: Spontaneous
  Country: EG (occurrence: None)
  Receive Date: 20230804
  Receipt Date: 20240315
  Transmission Date: 20240410
  Serious: Yes (Life-Threatening, Hospitalization, Other)
  Sender: FDA-Public Use
  Company Number: 2023A177612

PATIENT
  Sex: Female

DRUGS (2)
  1. LYNPARZA [Suspect]
     Active Substance: OLAPARIB
     Indication: Noninfective oophoritis
     Route: 048
     Dates: start: 20230403
  2. LYNPARZA [Suspect]
     Active Substance: OLAPARIB
     Indication: Noninfective oophoritis
     Route: 048

REACTIONS (3)
  - Haemoglobin decreased [Recovered/Resolved]
  - Anaemia [Unknown]
  - Insurance issue [Unknown]
